FAERS Safety Report 12689647 (Version 5)
Quarter: 2024Q3

REPORT INFORMATION
  Report Type: Spontaneous
  Country: ES (occurrence: ES)
  Receive Date: 20160826
  Receipt Date: 20240924
  Transmission Date: 20241017
  Serious: Yes (Other)
  Sender: AUROBINDO
  Company Number: ES-AUROBINDO-AUR-APL-2016-10934

PATIENT
  Age: 49 Year
  Sex: Male

DRUGS (9)
  1. ACETAMINOPHEN [Suspect]
     Active Substance: ACETAMINOPHEN
     Indication: Analgesic therapy
     Dosage: UNK
     Route: 065
  2. VALSARTAN [Interacting]
     Active Substance: VALSARTAN
     Indication: Hypertension
     Dosage: UNK
     Route: 065
  3. GEMFIBROZIL [Interacting]
     Active Substance: GEMFIBROZIL
     Indication: Hypertension
     Dosage: UNK
     Route: 065
  4. GEMFIBROZIL [Interacting]
     Active Substance: GEMFIBROZIL
     Indication: Hypertriglyceridaemia
  5. DIPYRONE [Suspect]
     Active Substance: DIPYRONE
     Indication: Influenza
     Dosage: 575 MILLIGRAM, 3 TIMES A DAY
     Route: 048
  6. DIPYRONE [Suspect]
     Active Substance: DIPYRONE
     Indication: Nasopharyngitis
  7. DIPYRONE [Suspect]
     Active Substance: DIPYRONE
     Indication: Influenza like illness
  8. METAMIZOLE [Interacting]
     Active Substance: METAMIZOLE
     Indication: Influenza like illness
     Dosage: 575 MILLIGRAM, 3 TIMES A DAY
     Route: 048
  9. METAMIZOLE [Interacting]
     Active Substance: METAMIZOLE
     Indication: Influenza like illness

REACTIONS (16)
  - Acute kidney injury [Recovered/Resolved]
  - Tubulointerstitial nephritis [Recovered/Resolved]
  - Renal tubular necrosis [Recovered/Resolved]
  - Abdominal pain [Recovered/Resolved]
  - Hyperlactacidaemia [Recovered/Resolved]
  - Hypouricaemia [Recovered/Resolved]
  - Condition aggravated [Recovered/Resolved]
  - Proteinuria [Recovered/Resolved]
  - Renal tubular disorder [Recovered/Resolved]
  - Glomerular filtration rate abnormal [Recovered/Resolved]
  - Decreased appetite [Recovered/Resolved]
  - Asthenia [Recovered/Resolved]
  - Nausea [Recovered/Resolved]
  - Drug interaction [Recovered/Resolved]
  - Fanconi syndrome [Recovered/Resolved]
  - Nephropathy toxic [Recovered/Resolved]
